FAERS Safety Report 25430775 (Version 4)
Quarter: 2025Q3

REPORT INFORMATION
  Report Type: Spontaneous
  Country: JP (occurrence: JP)
  Receive Date: 20250612
  Receipt Date: 20250911
  Transmission Date: 20251020
  Serious: Yes (Other)
  Sender: MERCK SHARP & DOHME LLC
  Company Number: JP-009507513-2294437

PATIENT
  Age: 73 Year
  Sex: Male

DRUGS (4)
  1. KEYTRUDA [Suspect]
     Active Substance: PEMBROLIZUMAB
     Indication: Bile duct cancer recurrent
     Dosage: 200 MG, EVERY 3 WEEKS, THE 6TH DOSE
     Route: 041
     Dates: start: 20250819
  2. KEYTRUDA [Suspect]
     Active Substance: PEMBROLIZUMAB
     Indication: Bile duct cancer recurrent
     Dosage: PATIENT ROA: INTRAVENOUS DRIP. ?DOSAGE: 200MG EVERY 3 WEEKS, 4 COURSES.
     Route: 041
     Dates: start: 20250109, end: 20250424
  3. GEMCITABINE [Concomitant]
     Active Substance: GEMCITABINE
     Indication: Bile duct cancer stage IV
     Dosage: CONTINUE ADMINISTRATION AT A REDUCE DOSE
     Dates: start: 20250109
  4. CISPLATIN [Concomitant]
     Active Substance: CISPLATIN
     Indication: Bile duct cancer stage IV
     Dosage: CONTINUE ADMINISTRATION AT A REDUCE DOSE
     Dates: start: 20250109

REACTIONS (3)
  - Neutropenia [Unknown]
  - Thrombocytopenia [Unknown]
  - Anaemia [Unknown]

NARRATIVE: CASE EVENT DATE: 20250101
